FAERS Safety Report 10069124 (Version 1)
Quarter: 2014Q2

REPORT INFORMATION
  Report Type: Spontaneous
  Country: US (occurrence: US)
  Receive Date: 20140409
  Receipt Date: 20140409
  Transmission Date: 20141212
  Serious: Yes (Other)
  Sender: FDA-Public Use
  Company Number: US-TAKEDA-2014TUS002698

PATIENT
  Sex: 0

DRUGS (4)
  1. DEXILANT [Suspect]
     Indication: GASTROOESOPHAGEAL REFLUX DISEASE
     Dosage: 30 MG, QD
     Route: 048
     Dates: start: 20130406
  2. K1 [Concomitant]
     Indication: NUTRITIONAL SUPPLEMENTATION
     Dosage: UNK
  3. VITAMIN B12                        /00056201/ [Concomitant]
     Indication: NUTRITIONAL SUPPLEMENTATION
     Dosage: UNK
  4. UNK MEDICATION [Concomitant]
     Dosage: UNK, NASAL INHALATION

REACTIONS (2)
  - Spinal operation [Unknown]
  - Malaise [Not Recovered/Not Resolved]
